FAERS Safety Report 9506005 (Version 2)
Quarter: 2014Q1

REPORT INFORMATION
  Report Type: Spontaneous
  Country: US (occurrence: None)
  Receive Date: 20130305
  Receipt Date: 20131225
  Transmission Date: 20141002
  Serious: Yes (Hospitalization, Other)
  Sender: FDA-Public Use
  Company Number: PHEH2013US001937

PATIENT
  Age: 41 Year
  Sex: Female

DRUGS (6)
  1. ZORTRESS [Suspect]
     Dosage: 1 MG, BID (12 HOURLY)
     Dates: end: 20130124
  2. NEORAL (CICLOSPORIN) [Concomitant]
  3. VALCYTE (VALGANCICLOVIR HYDROCHLORIDE) (VALGANCICLOVIR HYDROCHLORIDE) [Concomitant]
  4. CRESOTR (ROSVASTATIN CALCIUM) [Concomitant]
  5. FERROUS SULFATE (FERROUS SULFATE) [Concomitant]
  6. CARDIZEM CD (DILTIAZEM HYDROCHLORIDE [Concomitant]

REACTIONS (3)
  - Transplant rejection [None]
  - Blood creatinine increased [None]
  - Haemoglobin decreased [None]
